FAERS Safety Report 21177005 (Version 2)
Quarter: 2023Q1

REPORT INFORMATION
  Report Type: Spontaneous
  Country: BR (occurrence: BR)
  Receive Date: 20220805
  Receipt Date: 20230304
  Transmission Date: 20230418
  Serious: Yes (Hospitalization, Other)
  Sender: FDA-Public Use
  Company Number: BR-ABBVIE-22K-020-4494413-00

PATIENT
  Age: 71 Year
  Sex: Female
  Weight: 55 kg

DRUGS (9)
  1. RINVOQ [Suspect]
     Active Substance: UPADACITINIB
     Indication: Rheumatoid arthritis
     Dosage: ONE TABLET
     Route: 048
     Dates: start: 2021, end: 20221016
  2. ROSUVASTATIN [Concomitant]
     Active Substance: ROSUVASTATIN
     Indication: Blood cholesterol abnormal
     Dosage: 20 MILLIGRAM?START DATE TEXT: AROUND 2002
  3. SYNTHROID [Concomitant]
     Active Substance: LEVOTHYROXINE SODIUM
     Indication: Hypothyroidism
     Dosage: 112 MICROGRAM
     Dates: start: 1977
  4. ATACAND [Concomitant]
     Active Substance: CANDESARTAN CILEXETIL
     Indication: Blood pressure abnormal
     Dosage: 16 MILLIGRAM?START DATE TEXT: AROUND 1992
  5. Predsim (Prednisolone) [Concomitant]
     Indication: Addison^s disease
     Dosage: 5 MILLIGRAM
     Route: 048
     Dates: start: 1977
  6. Trayenta (linagliptin) [Concomitant]
     Indication: Diabetes mellitus
     Dosage: 1 TABLET?START DATE TEXT: AROUND 2014
     Route: 048
  7. METHYL METHACRYLATE [Suspect]
     Active Substance: METHYL METHACRYLATE
     Indication: Product used for unknown indication
     Route: 065
  8. AAS (Adulto) [Concomitant]
     Indication: Anticoagulant therapy
     Dosage: 1 TABLET?START DATE TEXT: AROUND 1992
     Route: 048
  9. GLICLAZIDE [Concomitant]
     Active Substance: GLICLAZIDE
     Indication: Diabetes mellitus
     Dosage: 30 MILLIGRAM
     Route: 048
     Dates: start: 2020

REACTIONS (10)
  - Coma [Recovered/Resolved]
  - Gastric ulcer [Unknown]
  - Pulmonary fibrosis [Not Recovered/Not Resolved]
  - Sepsis [Recovered/Resolved]
  - COVID-19 [Recovered/Resolved]
  - Pneumonia bacterial [Recovering/Resolving]
  - Blood pressure abnormal [Not Recovered/Not Resolved]
  - Peripheral swelling [Not Recovered/Not Resolved]
  - Diabetes mellitus [Not Recovered/Not Resolved]
  - Mouth ulceration [Unknown]

NARRATIVE: CASE EVENT DATE: 20211201
